FAERS Safety Report 10553316 (Version 2)
Quarter: 2015Q1

REPORT INFORMATION
  Report Type: Report from Study
  Country: US (occurrence: US)
  Receive Date: 20141030
  Receipt Date: 20150219
  Transmission Date: 20150720
  Serious: Yes (Death, Hospitalization, Other)
  Sender: FDA-Public Use
  Company Number: US-BIOGENIDEC-2014BI107958

PATIENT
  Age: 71 Year
  Sex: Male

DRUGS (1)
  1. TYSABRI [Suspect]
     Active Substance: NATALIZUMAB
     Indication: MULTIPLE SCLEROSIS
     Route: 042
     Dates: start: 20090818, end: 20140829

REACTIONS (3)
  - Hepatopulmonary syndrome [Fatal]
  - Hepatic cirrhosis [Unknown]
  - Hepatic failure [Fatal]
